FAERS Safety Report 4347757-6 (Version None)
Quarter: 2004Q2

REPORT INFORMATION
  Report Type: 
  Country: None (occurrence: None)
  Receive Date: 20040427
  Receipt Date: 20040406
  Transmission Date: 20050107
  Serious: Yes (Hospitalization)
  Sender: FDA-Public Use
  Company Number: 200412611US

PATIENT
  Sex: Male

DRUGS (7)
  1. LANTUS [Suspect]
     Indication: INSULIN-REQUIRING TYPE II DIABETES MELLITUS
     Dosage: DOSE UNIT: UNITS
     Dates: start: 20040215
  2. NEORAL [Concomitant]
  3. CELLCEPT [Concomitant]
  4. PREDNISONE [Concomitant]
     Dosage: DOSE: NOT PROVIDED
  5. DIOVAN [Concomitant]
     Dosage: DOSE: NOT PROVIDED
  6. ZYRTEC [Concomitant]
     Dosage: DOSE: NOT PROVIDED
  7. ASPIRIN [Concomitant]
     Dosage: DOSE: NOT PROVIDED

REACTIONS (1)
  - CEREBROVASCULAR ACCIDENT [None]
